FAERS Safety Report 10311369 (Version 1)
Quarter: 2014Q3

REPORT INFORMATION
  Report Type: Spontaneous
  Country: US (occurrence: None)
  Receive Date: 20140716
  Receipt Date: 20140716
  Transmission Date: 20150326
  Serious: Yes (Hospitalization)
  Sender: FDA-Public Use
  Company Number: None

PATIENT
  Age: 45 Year
  Sex: Female
  Weight: 64.86 kg

DRUGS (1)
  1. CIPRO [Suspect]
     Active Substance: CIPROFLOXACIN HYDROCHLORIDE

REACTIONS (6)
  - Headache [None]
  - Dizziness [None]
  - Nervous system disorder [None]
  - Hallucination [None]
  - Hypoaesthesia [None]
  - Feeling abnormal [None]

NARRATIVE: CASE EVENT DATE: 20140521
